FAERS Safety Report 8834602 (Version 1)
Quarter: 2012Q4

REPORT INFORMATION
  Report Type: 
  Country: US (occurrence: US)
  Receive Date: 20121010
  Receipt Date: 20121010
  Transmission Date: 20130627
  Serious: Yes (Life-Threatening, Hospitalization, Other)
  Sender: FDA-Public Use
  Company Number: US-009507513-2010SP042279

PATIENT

DRUGS (2)
  1. NUVARING [Suspect]
     Indication: CONTRACEPTION
     Dates: start: 200706, end: 20070807
  2. VITAMINS (UNSPECIFIED) [Concomitant]
     Indication: ROUTINE HEALTH MAINTENANCE
     Dosage: UNK UNK, QD
     Dates: start: 1976

REACTIONS (13)
  - Intraductal proliferative breast lesion [Unknown]
  - Pulmonary embolism [Unknown]
  - Drug hypersensitivity [Unknown]
  - Lordosis [Unknown]
  - Coagulopathy [Unknown]
  - Depression [Unknown]
  - Myofascial pain syndrome [Unknown]
  - Facet joint syndrome [Unknown]
  - Costochondritis [Unknown]
  - Stress fracture [Unknown]
  - Vitamin D deficiency [Unknown]
  - Sleep disorder [Unknown]
  - Hot flush [Unknown]
